FAERS Safety Report 7141220-5 (Version None)
Quarter: 2010Q4

REPORT INFORMATION
  Report Type: 
  Country: None (occurrence: None)
  Receive Date: 20101122
  Receipt Date: 20101105
  Transmission Date: 20110411
  Serious: Yes (Congenital Anomaly, Other)
  Sender: FDA-Public Use
  Company Number: 1000017398

PATIENT
  Sex: Female
  Weight: 3.15 kg

DRUGS (5)
  1. CAMPRAL [Suspect]
     Indication: ALCOHOLISM
     Dosage: 1998 GM, TRANSPLACENTAL
     Route: 064
     Dates: start: 20100301, end: 20100701
  2. PROPRANOLOL [Suspect]
     Dosage: TRANSPLACENTAL
     Route: 064
  3. THIAMINE (THIAMINE) [Suspect]
     Dosage: 200 MG (200 MG, 1 IN 1 D) TRANSPLACENTAL
     Route: 064
     Dates: start: 20100301
  4. VENLAFAXINE [Suspect]
     Dosage: TRANSPLACENTAL
     Route: 064
  5. VITAMIN B (VITAMIN B) (TABLETS) [Suspect]
     Dosage: 2 DOSAGE FORM (1 DOSAGE FORMS, 2 IN 1 D); TRANSPLACENTAL
     Route: 064
     Dates: start: 20100301

REACTIONS (8)
  - ANOMALY OF EXTERNAL EAR CONGENITAL [None]
  - CLEFT PALATE [None]
  - CLUBBING [None]
  - CONGENITAL EYE DISORDER [None]
  - DYSMORPHISM [None]
  - FOETAL ALCOHOL SYNDROME [None]
  - LIMB MALFORMATION [None]
  - MATERNAL DRUGS AFFECTING FOETUS [None]
